FAERS Safety Report 24532670 (Version 2)
Quarter: 2024Q4

REPORT INFORMATION
  Report Type: Spontaneous
  Country: JP (occurrence: JP)
  Receive Date: 20241022
  Receipt Date: 20241115
  Transmission Date: 20250114
  Serious: Yes (Other)
  Sender: RANBAXY
  Company Number: JP-SUN PHARMACEUTICAL INDUSTRIES LTD-2024RR-474541

PATIENT
  Age: 88 Year
  Sex: Female

DRUGS (9)
  1. LEVOFLOXACIN [Suspect]
     Active Substance: LEVOFLOXACIN
     Indication: Pulmonary nocardiosis
  2. TACROLIMUS [Suspect]
     Active Substance: TACROLIMUS
     Indication: Pulmonary nocardiosis
     Dosage: UNK
  3. PREDONINE [Suspect]
     Active Substance: PREDNISOLONE
     Indication: Glomerulonephritis minimal lesion
     Dosage: 40 MILLIGRAM, DAILY
     Route: 065
  4. MEDROL [Suspect]
     Active Substance: METHYLPREDNISOLONE
     Indication: Glomerulonephritis minimal lesion
     Dosage: 8 MILLIGRAM, DAILY
     Route: 065
  5. SULFAMETHOXAZOLE\TRIMETHOPRIM [Suspect]
     Active Substance: SULFAMETHOXAZOLE\TRIMETHOPRIM
     Indication: Pulmonary nocardiosis
     Dosage: 1.5 MILLIGRAM
     Route: 065
  6. SULFAMETHOXAZOLE\TRIMETHOPRIM [Suspect]
     Active Substance: SULFAMETHOXAZOLE\TRIMETHOPRIM
     Dosage: 1 MG
  7. MEROPENEM [Suspect]
     Active Substance: MEROPENEM
     Indication: Pulmonary nocardiosis
     Dosage: UNK
     Route: 065
  8. AUGMENTIN [Suspect]
     Active Substance: AMOXICILLIN\CLAVULANATE POTASSIUM
     Indication: Pulmonary nocardiosis
     Dosage: UNK
     Route: 065
  9. LINEZOLID [Suspect]
     Active Substance: LINEZOLID
     Indication: Pulmonary nocardiosis
     Dosage: UNK
     Route: 065

REACTIONS (9)
  - Drug ineffective [Unknown]
  - Skin ulcer [Unknown]
  - Malaise [Unknown]
  - Decreased appetite [Unknown]
  - C-reactive protein increased [Unknown]
  - Disease progression [Unknown]
  - Condition aggravated [Unknown]
  - Aspartate aminotransferase increased [Unknown]
  - Alanine aminotransferase increased [Unknown]
